FAERS Safety Report 12054717 (Version 1)
Quarter: 2016Q1

REPORT INFORMATION
  Report Type: Report from Study
  Country: US (occurrence: US)
  Receive Date: 20160209
  Receipt Date: 20160209
  Transmission Date: 20160526
  Serious: No
  Sender: FDA-Public Use
  Company Number: US-ABBVIE-15P-163-1460752-00

PATIENT
  Age: 43 Year
  Sex: Male

DRUGS (3)
  1. HUMIRA [Suspect]
     Active Substance: ADALIMUMAB
     Indication: COLITIS ULCERATIVE
  2. HUMIRA [Suspect]
     Active Substance: ADALIMUMAB
     Indication: CROHN^S DISEASE
     Route: 065
     Dates: start: 20150612
  3. OXYCODONE [Concomitant]
     Active Substance: OXYCODONE
     Indication: PAIN
     Dosage: 1 TO 2 TABLETS
     Route: 048

REACTIONS (8)
  - Contusion [Unknown]
  - Proctalgia [Unknown]
  - Procedural pain [Unknown]
  - Anorectal discomfort [Unknown]
  - Painful defaecation [Unknown]
  - Osteoarthritis [Unknown]
  - Haematochezia [Unknown]
  - Cough [Unknown]

NARRATIVE: CASE EVENT DATE: 2015
